FAERS Safety Report 11910422 (Version 3)
Quarter: 2023Q4

REPORT INFORMATION
  Report Type: Report from Study
  Country: CN (occurrence: CN)
  Receive Date: 20160112
  Receipt Date: 20231102
  Transmission Date: 20240110
  Serious: Yes (Hospitalization)
  Sender: FDA-Public Use
  Company Number: CN-KYOWAKIRIN-2016WRD-RPT000001

PATIENT
  Age: 50 Year
  Sex: Female

DRUGS (3)
  1. ROMIPLOSTIM [Suspect]
     Active Substance: ROMIPLOSTIM
     Indication: Immune thrombocytopenia
     Dosage: 3 MICROGRAM/KILOGRAM, UNK
     Route: 042
     Dates: start: 20151209, end: 20151223
  2. NORETHINDRONE [Suspect]
     Active Substance: NORETHINDRONE
     Indication: Uterine haemorrhage
     Dosage: 5 MILLIGRAM, UNK
     Route: 048
     Dates: start: 20151120
  3. NORETHINDRONE [Suspect]
     Active Substance: NORETHINDRONE
     Dosage: 2.5 MILLIGRAM, BID
     Route: 065
     Dates: start: 20151120

REACTIONS (1)
  - Venous thrombosis limb [Recovering/Resolving]

NARRATIVE: CASE EVENT DATE: 20151228
